FAERS Safety Report 5900659-3 (Version None)
Quarter: 2008Q3

REPORT INFORMATION
  Report Type: 
  Country: None (occurrence: None)
  Receive Date: 20080926
  Receipt Date: 20080915
  Transmission Date: 20090109
  Serious: Yes (Other)
  Sender: FDA-Public Use
  Company Number: US-PFIZER INC-2008078851

PATIENT
  Sex: Female
  Weight: 78.5 kg

DRUGS (5)
  1. CHANTIX [Suspect]
     Indication: SMOKING CESSATION THERAPY
     Dates: start: 20080701
  2. NEURONTIN [Concomitant]
  3. TRAZODONE HCL [Concomitant]
  4. VALIUM [Concomitant]
  5. BENADRYL [Concomitant]

REACTIONS (4)
  - HEPATOMEGALY [None]
  - KIDNEY INFECTION [None]
  - MYOCARDIAL INFARCTION [None]
  - URINARY TRACT INFECTION [None]
